FAERS Safety Report 14906609 (Version 1)
Quarter: 2018Q2

REPORT INFORMATION
  Report Type: Spontaneous
  Country: US (occurrence: US)
  Receive Date: 20180517
  Receipt Date: 20180517
  Transmission Date: 20180711
  Serious: No
  Sender: FDA-Public Use
  Company Number: US-SA-2017SA066388

PATIENT
  Age: 28 Year
  Sex: Female

DRUGS (10)
  1. SOLOSTAR [Suspect]
     Active Substance: DEVICE
     Indication: TYPE 1 DIABETES MELLITUS
     Dates: start: 2004, end: 20170409
  2. LANTUS SOLOSTAR [Suspect]
     Active Substance: INSULIN GLARGINE
     Indication: TYPE 1 DIABETES MELLITUS
     Dosage: 25-38 UNITS DOSE:25 UNIT(S)
     Route: 051
     Dates: start: 2004, end: 20170409
  3. LANTUS SOLOSTAR [Suspect]
     Active Substance: INSULIN GLARGINE
     Indication: TYPE 1 DIABETES MELLITUS
     Dosage: DOSE:38 UNIT(S)
     Route: 051
     Dates: start: 20170412, end: 20170420
  4. LANTUS SOLOSTAR [Suspect]
     Active Substance: INSULIN GLARGINE
     Indication: TYPE 1 DIABETES MELLITUS
     Dosage: 25-38 UNITS DOSE:25 UNIT(S)
     Route: 051
     Dates: start: 2004, end: 20170409
  5. LANTUS SOLOSTAR [Suspect]
     Active Substance: INSULIN GLARGINE
     Indication: TYPE 1 DIABETES MELLITUS
     Dosage: DOSE:38 UNIT(S)
     Route: 051
     Dates: start: 20170412, end: 20170420
  6. FOLIC ACID. [Concomitant]
     Active Substance: FOLIC ACID
  7. SOLOSTAR [Suspect]
     Active Substance: DEVICE
     Indication: TYPE 1 DIABETES MELLITUS
     Dates: start: 20170412, end: 20170420
  8. NOVOLOG [Concomitant]
     Active Substance: INSULIN ASPART
     Dosage: SLIDING SCALE
     Route: 065
  9. SOLOSTAR [Suspect]
     Active Substance: DEVICE
     Indication: TYPE 1 DIABETES MELLITUS
     Dates: start: 2004, end: 20170409
  10. FISH OIL [Concomitant]
     Active Substance: FISH OIL

REACTIONS (2)
  - Blood glucose increased [Not Recovered/Not Resolved]
  - Drug ineffective [Unknown]

NARRATIVE: CASE EVENT DATE: 201704
